FAERS Safety Report 9916723 (Version 1)
Quarter: 2014Q1

REPORT INFORMATION
  Report Type: Spontaneous
  Country: CN (occurrence: CN)
  Receive Date: 20140221
  Receipt Date: 20140221
  Transmission Date: 20141002
  Serious: Yes (Other)
  Sender: FDA-Public Use
  Company Number: CN-PFIZER INC-2014049766

PATIENT
  Sex: 0

DRUGS (4)
  1. ZELDOX [Suspect]
     Dosage: 120 MG, UNK
     Route: 048
  2. ZELDOX [Suspect]
     Dosage: 160 MG, UNK
     Route: 048
  3. ZELDOX [Suspect]
     Dosage: 120 MG, UNK
     Route: 048
  4. ZELDOX [Suspect]
     Dosage: 160 MG, UNK
     Route: 048

REACTIONS (1)
  - Sinoatrial block [Unknown]
